FAERS Safety Report 22009894 (Version 4)
Quarter: 2024Q3

REPORT INFORMATION
  Report Type: Report from Study
  Country: CA (occurrence: CA)
  Receive Date: 20230220
  Receipt Date: 20240807
  Transmission Date: 20241016
  Serious: No
  Sender: ROCHE
  Company Number: CA-ROCHE-3281259

PATIENT
  Age: 41 Year
  Sex: Female

DRUGS (5)
  1. OCREVUS [Suspect]
     Active Substance: OCRELIZUMAB
     Indication: Relapsing-remitting multiple sclerosis
     Dosage: 300 MG AT DAY 0 AND 14, THEN 600 MG EVERY 6 MONTH
     Route: 042
     Dates: start: 20220211
  2. BENADRYL [Suspect]
     Active Substance: DIPHENHYDRAMINE HYDROCHLORIDE
     Indication: Product used for unknown indication
     Route: 065
  3. RITALIN [Suspect]
     Active Substance: METHYLPHENIDATE HYDROCHLORIDE
     Indication: Product used for unknown indication
     Route: 065
     Dates: end: 202302
  4. SOLIFENACIN [Concomitant]
     Active Substance: SOLIFENACIN
  5. CONCERTA [Concomitant]
     Active Substance: METHYLPHENIDATE HYDROCHLORIDE

REACTIONS (16)
  - Asthenia [Unknown]
  - Sedation [Unknown]
  - Irritability [Unknown]
  - Constipation [Recovering/Resolving]
  - Bladder disorder [Recovering/Resolving]
  - Influenza [Recovered/Resolved with Sequelae]
  - Urinary tract infection [Recovered/Resolved]
  - Nasopharyngitis [Recovered/Resolved]
  - Somnolence [Unknown]
  - Speech disorder [Recovering/Resolving]
  - Fatigue [Unknown]
  - Generalised anxiety disorder [Unknown]
  - Attention deficit hyperactivity disorder [Unknown]
  - Fall [Unknown]
  - Concussion [Unknown]
  - Stress [Unknown]

NARRATIVE: CASE EVENT DATE: 20230209
